FAERS Safety Report 22533696 (Version 1)
Quarter: 2023Q2

REPORT INFORMATION
  Report Type: Spontaneous
  Country: US (occurrence: US)
  Receive Date: 20230608
  Receipt Date: 20230608
  Transmission Date: 20230721
  Serious: No
  Sender: FDA-Public Use
  Company Number: US-DENDREON PHARMACEUTICAL LLC-2022DEN000351

PATIENT

DRUGS (4)
  1. PROVENGE [Suspect]
     Active Substance: SIPULEUCEL-T
     Indication: Prostate cancer metastatic
     Dosage: DOSE 2
     Route: 042
     Dates: start: 20221103, end: 20221103
  2. PROVENGE [Suspect]
     Active Substance: SIPULEUCEL-T
     Dosage: DOSE 1
     Route: 042
     Dates: start: 20221020, end: 20221020
  3. XGEVA [Concomitant]
     Active Substance: DENOSUMAB
     Indication: Supplementation therapy
     Dosage: UNK, UNKNOWN
     Route: 065
  4. VITAMIN D NOS [Concomitant]
     Active Substance: VITAMIN D NOS
     Indication: Supplementation therapy
     Dosage: UNK, UNKNOWN
     Route: 065

REACTIONS (3)
  - Back pain [Unknown]
  - Abdominal discomfort [Unknown]
  - Nausea [Unknown]

NARRATIVE: CASE EVENT DATE: 20221114
